FAERS Safety Report 18269535 (Version 1)
Quarter: 2020Q3

REPORT INFORMATION
  Report Type: Report from Study
  Country: None (occurrence: US)
  Receive Date: 20200916
  Receipt Date: 20200916
  Transmission Date: 20201103
  Serious: Yes (Hospitalization)
  Sender: FDA-Public Use
  Company Number: US-ABBVIE-20K-163-3563452-00

PATIENT
  Sex: Female

DRUGS (1)
  1. RINVOQ [Suspect]
     Active Substance: UPADACITINIB
     Indication: RHEUMATOID ARTHRITIS
     Route: 048
     Dates: end: 201910

REACTIONS (6)
  - Peripheral swelling [Recovered/Resolved]
  - Fatigue [Recovered/Resolved]
  - Acute kidney injury [Recovered/Resolved]
  - Unresponsive to stimuli [Recovered/Resolved]
  - Thrombosis [Recovered/Resolved]
  - Amnesia [Unknown]

NARRATIVE: CASE EVENT DATE: 2019
